FAERS Safety Report 7466190-1 (Version None)
Quarter: 2011Q2

REPORT INFORMATION
  Report Type: 
  Country: None (occurrence: None)
  Receive Date: 20110509
  Receipt Date: 20110425
  Transmission Date: 20111010
  Serious: Yes (Hospitalization)
  Sender: FDA-Public Use
  Company Number: JP-ELI_LILLY_AND_COMPANY-JP201104006575

PATIENT
  Age: 35 Year
  Sex: Female

DRUGS (4)
  1. ZYPREXA [Suspect]
     Indication: BIPOLAR DISORDER
     Dosage: 20 MG, QD
     Route: 048
  2. LIMAS [Concomitant]
     Dosage: 600 MG, QD
     Route: 048
  3. LIMAS [Concomitant]
     Indication: BIPOLAR DISORDER
     Dosage: 600 MG, QD
     Route: 048
  4. LIMAS [Concomitant]
     Dosage: 800 MG, QD
     Route: 048

REACTIONS (2)
  - BIPOLAR DISORDER [None]
  - NYSTAGMUS [None]
